FAERS Safety Report 5802690-5 (Version None)
Quarter: 2008Q3

REPORT INFORMATION
  Report Type: 
  Country: None (occurrence: None)
  Receive Date: 20080703
  Receipt Date: 20080528
  Transmission Date: 20090109
  Serious: Yes (Hospitalization)
  Sender: FDA-Public Use
  Company Number: 056-20785-08051313

PATIENT
  Age: 72 Year
  Sex: Female
  Weight: 55 kg

DRUGS (6)
  1. THALIDOMIDE [Suspect]
     Indication: MULTIPLE MYELOMA
     Dosage: 200 MG, 4 IN 1 D, ORAL
     Route: 048
     Dates: start: 20070906, end: 20080415
  2. LEVOTHYROX (LEVOTHYROXINE SODIUM) (TABLETS) [Concomitant]
  3. CACIT D3 (LEKOVIT CA) (TABLETS) [Concomitant]
  4. ZOFRAN [Concomitant]
  5. ALKERAN [Concomitant]
  6. MEDROL [Concomitant]

REACTIONS (3)
  - AREFLEXIA [None]
  - HYPOAESTHESIA [None]
  - OEDEMA PERIPHERAL [None]
